FAERS Safety Report 18830833 (Version 1)
Quarter: 2021Q1

REPORT INFORMATION
  Report Type: Spontaneous
  Country: US (occurrence: US)
  Receive Date: 20210202
  Receipt Date: 20210202
  Transmission Date: 20210419
  Serious: No
  Sender: FDA-Public Use
  Company Number: None

PATIENT
  Age: 70 Year
  Sex: Female
  Weight: 58.95 kg

DRUGS (2)
  1. VANCOMYCIN [Suspect]
     Active Substance: VANCOMYCIN
     Indication: LOCALISED INFECTION
     Route: 041
     Dates: start: 20210110, end: 20210127
  2. CEFTRIAXONE. [Concomitant]
     Active Substance: CEFTRIAXONE
     Dates: start: 20210110

REACTIONS (2)
  - Neutropenia [None]
  - Eosinophilia [None]

NARRATIVE: CASE EVENT DATE: 20210125
